FAERS Safety Report 7552378-8 (Version None)
Quarter: 2011Q2

REPORT INFORMATION
  Report Type: 
  Country: None (occurrence: None)
  Receive Date: 20110616
  Receipt Date: 20050120
  Transmission Date: 20111010
  Serious: Yes (Hospitalization, Other)
  Sender: FDA-Public Use
  Company Number: PHHO2005JP01450

PATIENT
  Sex: Female

DRUGS (6)
  1. BENET [Concomitant]
     Indication: OSTEOPOROSIS
  2. ALFAROL [Concomitant]
     Indication: OSTEOPOROSIS
  3. DIOVAN [Suspect]
     Dosage: 80 MG/DAILY
     Route: 048
     Dates: start: 20031022, end: 20041218
  4. TRICHLORMETHIAZIDE [Concomitant]
     Indication: HYPERTENSION
     Dates: start: 20040430, end: 20040621
  5. DIOVAN [Suspect]
     Indication: HYPERTENSION
     Dosage: 40 MG/DAILY
     Route: 048
     Dates: start: 20021226, end: 20031021
  6. ADALAT [Concomitant]
     Indication: HYPERTENSION
     Dates: start: 20031104, end: 20040402

REACTIONS (3)
  - PANNICULITIS [None]
  - CEREBRAL HAEMORRHAGE [None]
  - HEMIPLEGIA [None]
